FAERS Safety Report 12839235 (Version 27)
Quarter: 2018Q1

REPORT INFORMATION
  Report Type: Spontaneous
  Country: US (occurrence: US)
  Receive Date: 20161012
  Receipt Date: 20180131
  Transmission Date: 20180508
  Serious: Yes (Other)
  Sender: FDA-Public Use
  Company Number: US-PFIZER INC-2016471303

PATIENT
  Age: 15 Year
  Sex: Female
  Weight: 72.56 kg

DRUGS (22)
  1. DEPO-PROVERA [Suspect]
     Active Substance: MEDROXYPROGESTERONE ACETATE
     Indication: CONTRACEPTION
     Dosage: 1 DF (SHOT), EVERY 3 MONTHS (FIRST INJECTION GIVEN IN THE ARM, SECOND INJECTION GIVEN IN BUTTOCKS)
     Route: 030
     Dates: start: 20160728
  2. ABILIFY [Concomitant]
     Active Substance: ARIPIPRAZOLE
     Indication: BIPOLAR DISORDER
     Dosage: 150 MG, 1X/DAY
     Route: 048
     Dates: start: 2017
  3. PROZAC [Concomitant]
     Active Substance: FLUOXETINE HYDROCHLORIDE
     Indication: BIPOLAR DISORDER
     Dosage: 20 MG, DAILY
     Route: 048
     Dates: start: 201612
  4. DEPO-PROVERA [Suspect]
     Active Substance: MEDROXYPROGESTERONE ACETATE
     Indication: MENSTRUATION DELAYED
     Dosage: UNK
  5. PRILOSEC [Concomitant]
     Active Substance: OMEPRAZOLE MAGNESIUM
     Indication: DYSPEPSIA
     Dosage: UNK
  6. PRILOSEC [Concomitant]
     Active Substance: OMEPRAZOLE MAGNESIUM
     Indication: GASTROOESOPHAGEAL REFLUX DISEASE
  7. VISTARIL [Concomitant]
     Active Substance: HYDROXYZINE PAMOATE
     Indication: ANXIETY
     Dosage: 25 MG, AS NEEDED (EVERY 4 HOURS AS NEEDED)
  8. DEPO-PROVERA [Suspect]
     Active Substance: MEDROXYPROGESTERONE ACETATE
     Dosage: UNK
     Dates: end: 2016
  9. PROZAC [Concomitant]
     Active Substance: FLUOXETINE HYDROCHLORIDE
     Indication: DEPRESSION
  10. DEPAKOTE [Concomitant]
     Active Substance: DIVALPROEX SODIUM
     Indication: BIPOLAR DISORDER
     Dosage: UNK, 2X/DAY (ONE IN NIGHT AND ONE IN MORNING)
     Route: 048
     Dates: start: 201612
  11. VISTARIL [Concomitant]
     Active Substance: HYDROXYZINE PAMOATE
     Indication: INSOMNIA
  12. VISTARIL [Concomitant]
     Active Substance: HYDROXYZINE PAMOATE
     Indication: DEPRESSION
  13. DEPO-PROVERA [Suspect]
     Active Substance: MEDROXYPROGESTERONE ACETATE
     Dosage: UNK
     Dates: start: 201612
  14. VISTARIL [Concomitant]
     Active Substance: HYDROXYZINE PAMOATE
     Indication: AGITATION
  15. DEPO-PROVERA [Suspect]
     Active Substance: MEDROXYPROGESTERONE ACETATE
     Dosage: UNK
     Route: 030
     Dates: start: 20170122, end: 20170122
  16. DEPO-PROVERA [Suspect]
     Active Substance: MEDROXYPROGESTERONE ACETATE
     Dosage: UNK
     Dates: start: 2016, end: 201606
  17. DEPAKOTE [Concomitant]
     Active Substance: DIVALPROEX SODIUM
     Indication: DEPRESSION
     Dosage: UNK (250MG 1 TABLET IN THE MORNING AND 2 TABLETS AT BEDTIME)
     Route: 048
  18. DEPO-PROVERA [Suspect]
     Active Substance: MEDROXYPROGESTERONE ACETATE
     Indication: SEXUALLY ACTIVE
     Dosage: 150 MG, EVERY 3 MONTHS
     Route: 030
     Dates: start: 20161003
  19. DEPO-PROVERA [Suspect]
     Active Substance: MEDROXYPROGESTERONE ACETATE
     Indication: PELVIC INFLAMMATORY DISEASE
     Dosage: 1 MG, UNK
     Route: 030
     Dates: start: 20161003
  20. DEPO-PROVERA [Suspect]
     Active Substance: MEDROXYPROGESTERONE ACETATE
     Dosage: UNK, EVERY 3 MONTHS
  21. ABILIFY [Concomitant]
     Active Substance: ARIPIPRAZOLE
     Indication: DEPRESSION
     Dosage: 5 MG, 1X/DAY (ONE TABLET, BY MOUTH, EVERY MORNING)
     Route: 048
     Dates: start: 201612
  22. DEPOCON [Concomitant]
     Dosage: UNK
     Route: 048

REACTIONS (38)
  - Food craving [Not Recovered/Not Resolved]
  - Metrorrhagia [Not Recovered/Not Resolved]
  - Abdominal pain [Not Recovered/Not Resolved]
  - Abdominal distension [Not Recovered/Not Resolved]
  - Asthenia [Not Recovered/Not Resolved]
  - Vulvovaginal burning sensation [Not Recovered/Not Resolved]
  - Vaginal cyst [Recovered/Resolved]
  - Ovarian cyst [Not Recovered/Not Resolved]
  - Helicobacter infection [Unknown]
  - Fatigue [Not Recovered/Not Resolved]
  - Skin striae [Not Recovered/Not Resolved]
  - Back pain [Not Recovered/Not Resolved]
  - Amenorrhoea [Not Recovered/Not Resolved]
  - Vaginal odour [Not Recovered/Not Resolved]
  - Bacterial vaginosis [Unknown]
  - Unintended pregnancy [Unknown]
  - Headache [Not Recovered/Not Resolved]
  - Pelvic pain [Unknown]
  - Dyspepsia [Unknown]
  - Polycystic ovaries [Not Recovered/Not Resolved]
  - Drug ineffective [Unknown]
  - Vaginal haemorrhage [Not Recovered/Not Resolved]
  - Pollakiuria [Unknown]
  - Burning sensation [Not Recovered/Not Resolved]
  - Breast enlargement [Not Recovered/Not Resolved]
  - Drug dose omission [Not Recovered/Not Resolved]
  - Chest pain [Not Recovered/Not Resolved]
  - Dizziness [Not Recovered/Not Resolved]
  - Menstrual disorder [Not Recovered/Not Resolved]
  - Paraesthesia [Not Recovered/Not Resolved]
  - Vaginal discharge [Unknown]
  - Fungal infection [Unknown]
  - Nausea [Not Recovered/Not Resolved]
  - Weight increased [Not Recovered/Not Resolved]
  - Vomiting [Recovered/Resolved]
  - Weight decreased [Unknown]
  - Amenorrhoea [Not Recovered/Not Resolved]
  - Uterine malposition [Not Recovered/Not Resolved]

NARRATIVE: CASE EVENT DATE: 2016
